FAERS Safety Report 4433207-8 (Version None)
Quarter: 2004Q3

REPORT INFORMATION
  Report Type: 
  Country: None (occurrence: None)
  Receive Date: 20040823
  Receipt Date: 20040812
  Transmission Date: 20050211
  Serious: Yes (Hospitalization)
  Sender: FDA-Public Use
  Company Number: HQWYE748529JUN04

PATIENT
  Sex: Male

DRUGS (1)
  1. CEPHORAL (CEFIXIME, UNSPEC) [Suspect]
     Indication: INFECTION
     Dosage: 800 MG DAILY ORAL
     Route: 048
     Dates: start: 20040101

REACTIONS (5)
  - CONFUSIONAL STATE [None]
  - FACIAL PALSY [None]
  - GAIT DISTURBANCE [None]
  - MEDICATION ERROR [None]
  - OVERDOSE [None]
